FAERS Safety Report 13442284 (Version 1)
Quarter: 2017Q2

REPORT INFORMATION
  Report Type: Other
  Country: CA (occurrence: CA)
  Receive Date: 20170414
  Receipt Date: 20170414
  Transmission Date: 20170830
  Serious: Yes (Death, Other)
  Sender: FDA-Public Use
  Company Number: CA-APOTEX-2017AP009812

PATIENT
  Age: 30 Year
  Sex: Male

DRUGS (1)
  1. APO-FENTANYL MATRIX [Suspect]
     Active Substance: FENTANYL
     Indication: PRODUCT USED FOR UNKNOWN INDICATION
     Dosage: UNK
     Route: 062

REACTIONS (10)
  - Analgesic drug level above therapeutic [Fatal]
  - Toxicity to various agents [Fatal]
  - Circumstance or information capable of leading to medication error [Fatal]
  - Medication residue present [Fatal]
  - Drug monitoring procedure not performed [Fatal]
  - Product use issue [Fatal]
  - Completed suicide [Fatal]
  - Incorrect drug administration duration [Fatal]
  - Product physical issue [Fatal]
  - Resuscitation [Fatal]
